FAERS Safety Report 9287501 (Version 2)
Quarter: 2013Q2

REPORT INFORMATION
  Report Type: Spontaneous
  Country: FR (occurrence: FR)
  Receive Date: 20130514
  Receipt Date: 20130514
  Transmission Date: 20140414
  Serious: Yes (Other)
  Sender: FDA-Public Use
  Company Number: FR-PFIZER INC-2010023949

PATIENT
  Age: 43 Year
  Sex: Male

DRUGS (8)
  1. CISPLATIN [Suspect]
     Indication: THYMIC CANCER METASTATIC
     Dosage: UNK, EVERY THREE WEEKS
     Dates: start: 200802
  2. CISPLATIN [Suspect]
     Dosage: UNK, EVERY THREE WEEKS
     Dates: start: 20080307
  3. FLUOROURACIL [Suspect]
     Indication: THYMIC CANCER METASTATIC
     Dosage: UNK, EVERY THREE WEEKS
     Dates: start: 200802
  4. FLUOROURACIL [Suspect]
     Dosage: UNK, EVERY THREE WEEKS
     Dates: start: 20080307
  5. DOCETAXEL [Suspect]
     Indication: THYMIC CANCER METASTATIC
     Dosage: UNK, EVERY THREE WEEKS
     Dates: start: 200802
  6. DOCETAXEL [Suspect]
     Dosage: UNK, EVERY THREE WEEKS
     Dates: start: 20080307
  7. VEGF-TRAP [Suspect]
     Indication: THYMIC CANCER METASTATIC
     Dosage: UNK, EVERY THREE WEEKS
     Dates: start: 200802
  8. VEGF-TRAP [Suspect]
     Dosage: UNK, EVERY THREE WEEKS
     Dates: start: 20080307

REACTIONS (6)
  - Impaired healing [Recovered/Resolved]
  - Wound dehiscence [None]
  - Catheter site inflammation [None]
  - Catheter site discharge [None]
  - Skin injury [None]
  - Catheter site pain [None]
